FAERS Safety Report 5183874-9 (Version None)
Quarter: 2006Q4

REPORT INFORMATION
  Report Type: 
  Country: None (occurrence: None)
  Receive Date: 20061220
  Receipt Date: 20060222
  Transmission Date: 20070319
  Serious: No
  Sender: FDA-Public Use
  Company Number: US-GLAXOSMITHKLINE-A0594765A

PATIENT
  Age: 67 Year
  Sex: Female

DRUGS (5)
  1. NICODERM CQ [Suspect]
     Dates: start: 20051221, end: 20060217
  2. NICODERM CQ [Suspect]
     Dates: start: 20051221, end: 20060217
  3. NICODERM CQ [Suspect]
     Dates: start: 20051221, end: 20060217
  4. DIGOXIN [Concomitant]
  5. ADVAIR DISKUS 100/50 [Concomitant]

REACTIONS (7)
  - APPLICATION SITE ERYTHEMA [None]
  - APPLICATION SITE PRURITUS [None]
  - APPLICATION SITE REACTION [None]
  - APPLICATION SITE SWELLING [None]
  - APPLICATION SITE WARMTH [None]
  - HYPERSENSITIVITY [None]
  - NICOTINE DEPENDENCE [None]
